FAERS Safety Report 4826041-8 (Version None)
Quarter: 2005Q4

REPORT INFORMATION
  Report Type: 
  Country: None (occurrence: None)
  Receive Date: 20051111
  Receipt Date: 20051003
  Transmission Date: 20060501
  Serious: Yes (Death)
  Sender: FDA-Public Use
  Company Number: JP-MERCK-0510USA03683

PATIENT
  Age: 87 Year
  Sex: Female

DRUGS (3)
  1. STROMECTOL [Suspect]
     Indication: ACARODERMATITIS
     Route: 048
     Dates: start: 20050917, end: 20050917
  2. STROMECTOL [Suspect]
     Route: 048
     Dates: start: 20050924, end: 20050924
  3. [THERAPY UNSPECIFIED] [Concomitant]
     Route: 065

REACTIONS (2)
  - DEATH [None]
  - HAEMATOCHEZIA [None]
